FAERS Safety Report 20434175 (Version 4)
Quarter: 2025Q3

REPORT INFORMATION
  Report Type: Spontaneous
  Country: US (occurrence: US)
  Receive Date: 20220206
  Receipt Date: 20250805
  Transmission Date: 20251021
  Serious: Yes (Hospitalization, Other)
  Sender: NOVARTIS
  Company Number: US-NOVARTISTESTPH-NVSC2022US023273

PATIENT
  Age: 64 Year
  Sex: Female
  Weight: 60 kg

DRUGS (40)
  1. KYMRIAH [Suspect]
     Active Substance: TISAGENLECLEUCEL
     Indication: Diffuse large B-cell lymphoma refractory
     Route: 042
     Dates: start: 20220117
  2. ACETAMINOPHEN [Concomitant]
     Active Substance: ACETAMINOPHEN
     Indication: Pyrexia
     Dosage: 650 MG, Q6H
     Route: 048
     Dates: start: 20220118, end: 20220121
  3. ACETYLCYSTEINE [Concomitant]
     Active Substance: ACETYLCYSTEINE
     Indication: Productive cough
     Dosage: 0.4GM/4ML
     Route: 055
     Dates: start: 20220120
  4. ACYCLOVIR [Concomitant]
     Active Substance: ACYCLOVIR
     Indication: Antiviral prophylaxis
     Dosage: 800 MG, BID
     Route: 048
     Dates: start: 20220117
  5. ALBUTEROL [Concomitant]
     Active Substance: ALBUTEROL
     Indication: Wheezing
     Dosage: 2.5MG/3 ML
     Route: 065
     Dates: start: 20220120
  6. ALBUTEROL [Concomitant]
     Active Substance: ALBUTEROL
     Indication: Dyspnoea
  7. BISACODYL [Concomitant]
     Active Substance: BISACODYL
     Indication: Laxative supportive care
     Dosage: 5 MG, QD
     Route: 048
     Dates: start: 20220118, end: 20220119
  8. CEFEPIME [Concomitant]
     Active Substance: CEFEPIME HYDROCHLORIDE
     Indication: Antibiotic therapy
     Dosage: 2 G, Q8H
     Route: 042
     Dates: start: 20220118, end: 20220123
  9. DRONABINOL [Concomitant]
     Active Substance: DRONABINOL
     Dosage: UNK MG, Q4H (5 MG - 10 MG)
     Route: 048
     Dates: start: 20220118, end: 20220120
  10. DRONABINOL [Concomitant]
     Active Substance: DRONABINOL
     Route: 048
     Dates: start: 20220119, end: 20220120
  11. FLUCONAZOLE [Concomitant]
     Active Substance: FLUCONAZOLE
     Indication: Antifungal treatment
     Dosage: 200 MG, QD
     Route: 048
     Dates: start: 20220112, end: 20220119
  12. FLUCONAZOLE [Concomitant]
     Active Substance: FLUCONAZOLE
     Dosage: 200 MG, QD
     Route: 042
     Dates: start: 20220123, end: 20220124
  13. FIORINAL [Concomitant]
     Active Substance: ASPIRIN\BUTALBITAL\CAFFEINE
     Indication: Pain
     Dosage: 1 CAP
     Route: 048
     Dates: start: 20220118, end: 20220124
  14. HYDROMORPHONE [Concomitant]
     Active Substance: HYDROMORPHONE
     Indication: Pain
     Route: 048
     Dates: start: 20220121, end: 20220121
  15. HYDROMORPHONE [Concomitant]
     Active Substance: HYDROMORPHONE
     Dosage: 1 MG, Q3H
     Route: 042
     Dates: start: 20220119, end: 20220119
  16. LACTATED RINGERS SOLUTION [Concomitant]
     Active Substance: CALCIUM CHLORIDE\POTASSIUM CHLORIDE\SODIUM CHLORIDE\SODIUM LACTATE
     Indication: Product used for unknown indication
     Route: 042
     Dates: start: 20220118, end: 20220120
  17. TOCILIZUMAB [Concomitant]
     Active Substance: TOCILIZUMAB
     Indication: Product used for unknown indication
     Route: 065
     Dates: start: 20220118
  18. TOCILIZUMAB [Concomitant]
     Active Substance: TOCILIZUMAB
     Route: 065
     Dates: start: 20220119
  19. TOCILIZUMAB [Concomitant]
     Active Substance: TOCILIZUMAB
     Route: 065
     Dates: start: 20220120
  20. TYLENOL [Concomitant]
     Active Substance: ACETAMINOPHEN
     Indication: Product used for unknown indication
     Route: 065
  21. VANCOMYCIN [Concomitant]
     Active Substance: VANCOMYCIN
     Indication: Antibiotic therapy
     Dosage: 1 G, BID
     Route: 042
     Dates: start: 20220119, end: 20220120
  22. NEUPOGEN [Concomitant]
     Active Substance: FILGRASTIM
     Indication: Neutropenia
     Dosage: UNK, QD
     Route: 058
     Dates: start: 20220120, end: 20220121
  23. MEROPENEM [Concomitant]
     Active Substance: MEROPENEM
     Indication: Antibiotic therapy
     Dosage: 500 MG, Q6H
     Route: 042
     Dates: start: 20220123, end: 20220125
  24. LEVETIRACETAM [Concomitant]
     Active Substance: LEVETIRACETAM
     Indication: Product used for unknown indication
     Dosage: 750 MG, QD (ORAL OR IV)
     Route: 065
     Dates: start: 20220117
  25. LEVOFLOXACIN [Concomitant]
     Active Substance: LEVOFLOXACIN
     Indication: Antibiotic therapy
     Dosage: 750 MG, QD
     Route: 048
     Dates: start: 20220117
  26. MAGNESIUM SULFATE [Concomitant]
     Active Substance: MAGNESIUM SULFATE
     Indication: Product used for unknown indication
     Route: 042
     Dates: start: 20220118
  27. METHOCARBAMOL [Concomitant]
     Active Substance: METHOCARBAMOL
     Indication: Myalgia
     Route: 048
     Dates: start: 20220122, end: 20220122
  28. ONDANSETRON [Concomitant]
     Active Substance: ONDANSETRON
     Indication: Antiemetic supportive care
     Dosage: 4 MG, Q6H
     Route: 042
     Dates: start: 20220118, end: 20220126
  29. POLYETHYLENE GLYCOL [Concomitant]
     Active Substance: POLYETHYLENE GLYCOL
     Indication: Laxative supportive care
     Dosage: 17 G, QD
     Route: 048
     Dates: start: 20220118, end: 20220119
  30. POSACONAZOLE [Concomitant]
     Active Substance: POSACONAZOLE
     Indication: Antifungal treatment
     Dosage: 300 G, QD
     Route: 048
     Dates: start: 20220120, end: 20220121
  31. POSACONAZOLE [Concomitant]
     Active Substance: POSACONAZOLE
     Dosage: 200 G, Q8H (SUSPENSION)
     Route: 048
     Dates: start: 20220124, end: 20220125
  32. POTASSIUM CHLORIDE [Concomitant]
     Active Substance: POTASSIUM CHLORIDE
     Indication: Electrolyte substitution therapy
     Route: 065
     Dates: start: 20220118, end: 20220126
  33. POTASSIUM PHOSPHATE [Concomitant]
     Active Substance: POTASSIUM PHOSPHATE
     Indication: Electrolyte substitution therapy
     Dosage: 30 MMOL, QD
     Route: 042
     Dates: start: 20220120, end: 20220121
  34. SODIUM PHOSPHATE, MONOBASIC [Concomitant]
     Active Substance: SODIUM PHOSPHATE, MONOBASIC
     Indication: Electrolyte substitution therapy
     Dosage: UNK UNK, QD (1 POCKET)
     Route: 048
     Dates: start: 20220120, end: 20220120
  35. PROCHLORPERAZINE [Concomitant]
     Active Substance: PROCHLORPERAZINE
     Indication: Antiemetic supportive care
     Dosage: 5 MG, Q4H
     Route: 042
     Dates: start: 20220119, end: 20220126
  36. SODIUM CHLORIDE [Concomitant]
     Active Substance: SODIUM CHLORIDE
     Indication: Product used for unknown indication
     Dosage: 1000 ML, QD
     Route: 065
     Dates: start: 20220118
  37. SODIUM CHLORIDE [Concomitant]
     Active Substance: SODIUM CHLORIDE
     Dosage: 500 ML, QD
     Route: 065
     Dates: start: 20220121, end: 20220122
  38. TIGECYCLINE [Concomitant]
     Active Substance: TIGECYCLINE
     Indication: Product used for unknown indication
     Dosage: 100 MG, QD
     Route: 042
     Dates: start: 20220119
  39. TIGECYCLINE [Concomitant]
     Active Substance: TIGECYCLINE
     Dosage: 50 MG, BID
     Route: 042
     Dates: start: 20220120, end: 20220225
  40. SODIUM CHLORIDE [Concomitant]
     Active Substance: SODIUM CHLORIDE
     Indication: Product used for unknown indication
     Dosage: 4 ML, QD
     Route: 065
     Dates: start: 20220119

REACTIONS (22)
  - Neurotoxicity [Recovered/Resolved]
  - Immune effector cell-associated neurotoxicity syndrome [Recovered/Resolved]
  - Cytokine release syndrome [Recovered/Resolved]
  - Pyrexia [Unknown]
  - Hypotension [Unknown]
  - Oxygen saturation decreased [Unknown]
  - Angioedema [Unknown]
  - Bronchiolitis [Unknown]
  - Noninfective sialoadenitis [Unknown]
  - Cough [Unknown]
  - Swelling face [Recovering/Resolving]
  - Dysphagia [Unknown]
  - Swelling [Unknown]
  - Oropharyngeal pain [Unknown]
  - Salivary gland enlargement [Recovered/Resolved]
  - Parotid gland enlargement [Recovered/Resolved]
  - Dysphonia [Unknown]
  - Pulmonary mass [Unknown]
  - Atelectasis [Unknown]
  - Pleural neoplasm [Unknown]
  - Diarrhoea [Unknown]
  - Tissue infiltration [Recovered/Resolved]

NARRATIVE: CASE EVENT DATE: 20220117
